FAERS Safety Report 19577477 (Version 1)
Quarter: 2021Q3

REPORT INFORMATION
  Report Type: Spontaneous
  Country: US (occurrence: US)
  Receive Date: 20210719
  Receipt Date: 20210719
  Transmission Date: 20211014
  Serious: No
  Sender: FDA-Public Use
  Company Number: US-P+L DEVELOPMENTS OF NEWYORK CORPORATION-2113968

PATIENT
  Age: 44 Year
  Sex: Male
  Weight: 97.52 kg

DRUGS (1)
  1. DOCOSANOL [Suspect]
     Active Substance: DOCOSANOL
     Indication: ORAL HERPES
     Route: 062

REACTIONS (2)
  - Drug ineffective [Unknown]
  - Product substitution issue [Unknown]
